FAERS Safety Report 7086602-5 (Version None)
Quarter: 2010Q4

REPORT INFORMATION
  Report Type: 
  Country: None (occurrence: None)
  Receive Date: 20101105
  Receipt Date: 20101103
  Transmission Date: 20110411
  Serious: Yes (Hospitalization, Other)
  Sender: FDA-Public Use
  Company Number: US-CEPHALON-2010005755

PATIENT
  Age: 79 Year
  Sex: Male

DRUGS (2)
  1. TREANDA [Suspect]
     Indication: MANTLE CELL LYMPHOMA
     Route: 042
  2. RITUXAN [Concomitant]
     Indication: MANTLE CELL LYMPHOMA
     Route: 042

REACTIONS (2)
  - MANTLE CELL LYMPHOMA [None]
  - SUICIDE ATTEMPT [None]
